FAERS Safety Report 4817389-1 (Version None)
Quarter: 2005Q4

REPORT INFORMATION
  Report Type: 
  Country: None (occurrence: None)
  Receive Date: 20051031
  Receipt Date: 20051014
  Transmission Date: 20060501
  Serious: Yes (Hospitalization)
  Sender: FDA-Public Use
  Company Number: 8011706

PATIENT
  Age: 60 Year
  Sex: Male
  Weight: 93.9 kg

DRUGS (15)
  1. ZAROXOLYN [Suspect]
     Indication: CARDIOVASCULAR DISORDER
     Dosage: 2.5 MG PRN PO
     Route: 048
  2. NESIRITIDE BLINDED INJECTION [Suspect]
     Indication: CARDIAC FAILURE
     Dosage: ONCE IV
     Route: 042
     Dates: start: 20050315, end: 20050315
  3. K-DUR 10 [Concomitant]
  4. PRAVACHOL [Concomitant]
  5. ALLOPURINOL [Concomitant]
  6. NESIRITIDE BLINDED INJECTION [Suspect]
     Indication: CARDIAC FAILURE
     Dosage: 2/W IV
     Route: 042
     Dates: start: 20050315, end: 20050628
  7. NESIRITIDE BLINDED INJECTION [Suspect]
     Indication: CARDIAC FAILURE
     Dosage: ONCE IV
     Route: 042
     Dates: start: 20050628, end: 20050628
  8. NESIRITIDE BLINDED INJECTION [Suspect]
     Indication: CARDIAC FAILURE
     Dosage: ONCE IV
     Route: 042
     Dates: start: 20050628, end: 20050628
  9. PLACEBO-BLINDED [Suspect]
     Indication: CARDIAC FAILURE
     Dosage: ONCE IV
     Route: 042
     Dates: start: 20050315, end: 20050315
  10. PLACEBO-BLINDED [Suspect]
     Indication: CARDIAC FAILURE
     Dosage: 2/W IV
     Route: 042
     Dates: start: 20050315, end: 20050628
  11. PLACEBO-BLINDED [Suspect]
     Indication: CARDIAC FAILURE
     Dosage: ONCE IV
     Route: 042
     Dates: start: 20050628, end: 20050628
  12. PLACEBO-BLINDED [Suspect]
     Indication: CARDIAC FAILURE
     Dosage: ONCE IV
     Route: 042
     Dates: start: 20050628, end: 20050628
  13. LISINOPRIL [Suspect]
     Indication: CARDIOVASCULAR DISORDER
     Dosage: 2.5 MG 1/D PO
     Route: 048
  14. DEMADEX [Suspect]
     Indication: CARDIOVASCULAR DISORDER
     Dosage: 50 MG 1/D PO
     Route: 048
  15. BETAPACE [Suspect]
     Indication: CARDIOVASCULAR DISORDER
     Dosage: 40 MG 2/D PO
     Route: 048

REACTIONS (16)
  - ASPARTATE AMINOTRANSFERASE INCREASED [None]
  - BLOOD ALKALINE PHOSPHATASE INCREASED [None]
  - BLOOD BICARBONATE INCREASED [None]
  - BLOOD CREATININE INCREASED [None]
  - BLOOD GLUCOSE INCREASED [None]
  - BLOOD UREA INCREASED [None]
  - BRAIN NATRIURETIC PEPTIDE INCREASED [None]
  - CARDIAC FAILURE CONGESTIVE [None]
  - CONDITION AGGRAVATED [None]
  - DRUG INTERACTION [None]
  - HAEMOGLOBIN DECREASED [None]
  - HYPOTENSION [None]
  - PCO2 INCREASED [None]
  - PO2 DECREASED [None]
  - PULMONARY OEDEMA [None]
  - RESPIRATORY DISTRESS [None]
